FAERS Safety Report 9640342 (Version 1)
Quarter: 2013Q4

REPORT INFORMATION
  Report Type: Spontaneous
  Country: US (occurrence: None)
  Receive Date: 20131022
  Receipt Date: 20131022
  Transmission Date: 20140711
  Serious: No
  Sender: FDA-Public Use
  Company Number: None

PATIENT
  Age: 45 Year
  Sex: Male
  Weight: 102.06 kg

DRUGS (2)
  1. CYCLOBENAZPRINE [Suspect]
     Indication: BACK PAIN
     Dosage: TAKEN BY MOUTH
     Route: 048
     Dates: start: 201209
  2. CYCLOBENAZPRINE [Suspect]
     Indication: ROAD TRAFFIC ACCIDENT
     Dosage: TAKEN BY MOUTH
     Route: 048
     Dates: start: 201209

REACTIONS (5)
  - Insomnia [None]
  - Restlessness [None]
  - Compulsions [None]
  - Disturbance in attention [None]
  - Discomfort [None]
